FAERS Safety Report 14328170 (Version 1)
Quarter: 2017Q4

REPORT INFORMATION
  Report Type: Spontaneous
  Country: US (occurrence: US)
  Receive Date: 20171227
  Receipt Date: 20171227
  Transmission Date: 20180321
  Serious: Yes (Death)
  Sender: FDA-Public Use
  Company Number: US-PFIZER INC-2017547297

PATIENT
  Age: 25 Year
  Sex: Male

DRUGS (2)
  1. PENTOBARBITAL. [Suspect]
     Active Substance: PENTOBARBITAL
     Dosage: 390 MG/ML, UNK
     Route: 048
  2. PHENYTOIN. [Suspect]
     Active Substance: PHENYTOIN
     Dosage: 50 MG/ML, UNK
     Route: 048

REACTIONS (7)
  - Completed suicide [Fatal]
  - Unresponsive to stimuli [Fatal]
  - Acidosis [Fatal]
  - Respiratory failure [Fatal]
  - Toxicity to various agents [Fatal]
  - Overdose [Fatal]
  - Cardiac arrest [Fatal]

NARRATIVE: CASE EVENT DATE: 2016
